FAERS Safety Report 10279824 (Version 1)
Quarter: 2014Q3

REPORT INFORMATION
  Report Type: Spontaneous
  Country: US (occurrence: None)
  Receive Date: 20140702
  Receipt Date: 20140702
  Transmission Date: 20150326
  Serious: No
  Sender: FDA-Public Use
  Company Number: None

PATIENT
  Age: 48 Year
  Sex: Male

DRUGS (1)
  1. RAPAMUNE [Suspect]
     Active Substance: SIROLIMUS
     Indication: TRANSPLANT REJECTION
     Dates: start: 20140502, end: 20140601

REACTIONS (5)
  - Dyspnoea [None]
  - Therapy cessation [None]
  - Chest pain [None]
  - Fluid retention [None]
  - Renal impairment [None]
